FAERS Safety Report 5763069-8 (Version None)
Quarter: 2008Q2

REPORT INFORMATION
  Report Type: 
  Country: None (occurrence: None)
  Receive Date: 20080609
  Receipt Date: 20080528
  Transmission Date: 20081010
  Serious: Yes (Hospitalization)
  Sender: FDA-Public Use
  Company Number: JP-PFIZER INC-2008029713

PATIENT
  Sex: Female
  Weight: 40 kg

DRUGS (3)
  1. AROMASIN [Suspect]
     Indication: BREAST CANCER
     Route: 048
     Dates: start: 20060406, end: 20070101
  2. AROMASIN [Suspect]
     Route: 048
     Dates: start: 20070621, end: 20080316
  3. VITAMINS [Suspect]
     Route: 048
     Dates: start: 20080307, end: 20080316

REACTIONS (1)
  - HEPATIC FUNCTION ABNORMAL [None]
